FAERS Safety Report 5318941-X (Version None)
Quarter: 2007Q2

REPORT INFORMATION
  Report Type: 
  Country: None (occurrence: None)
  Receive Date: 20070503
  Receipt Date: 20070503
  Transmission Date: 20071010
  Serious: Yes (Other)
  Sender: FDA-Public Use
  Company Number: None

PATIENT
  Age: 80 Year
  Sex: Female
  Weight: 74.3899 kg

DRUGS (1)
  1. CARTIA XT [Suspect]
     Indication: HYPERTENSION
     Dosage: 1 CAPSULE DAILY
     Dates: start: 20050301

REACTIONS (4)
  - DIZZINESS [None]
  - PHARMACEUTICAL PRODUCT COMPLAINT [None]
  - STOMACH DISCOMFORT [None]
  - THERAPEUTIC RESPONSE UNEXPECTED WITH DRUG SUBSTITUTION [None]
